FAERS Safety Report 23021210 (Version 1)
Quarter: 2023Q4

REPORT INFORMATION
  Report Type: Spontaneous
  Country: US (occurrence: US)
  Receive Date: 20231003
  Receipt Date: 20231003
  Transmission Date: 20240110
  Serious: No
  Sender: FDA-Public Use
  Company Number: US-REVANCE THERAPEUTICS INC.-US-REV-2023-000355

PATIENT

DRUGS (2)
  1. DAXIBOTULINUMTOXIN A-LANM [Suspect]
     Active Substance: DAXIBOTULINUMTOXIN A-LANM
     Indication: Product used for unknown indication
     Dosage: 2 INJECTIONS WERE PLACED IN THE UPPER EYELID NEAR THE MEDIAL AND LATERAL LIMBUS WITH 3 UNITS, TWO IN
     Route: 065
     Dates: start: 20230802
  2. BOTULINUM TOXIN TYPE A [Concomitant]
     Active Substance: BOTULINUM TOXIN TYPE A
     Indication: Product used for unknown indication
     Dosage: UNK, GLABELLA/FRONTALIS/LCL/MENTALIS AND DAO
     Route: 065
     Dates: start: 20230802

REACTIONS (3)
  - Facial asymmetry [Unknown]
  - Eyelid function disorder [Not Recovered/Not Resolved]
  - Off label use [Unknown]

NARRATIVE: CASE EVENT DATE: 20230801
